FAERS Safety Report 5015531-3 (Version None)
Quarter: 2006Q2

REPORT INFORMATION
  Report Type: 
  Country: None (occurrence: None)
  Receive Date: 20060601
  Receipt Date: 20060523
  Transmission Date: 20061013
  Serious: Yes (Hospitalization)
  Sender: FDA-Public Use
  Company Number: ES-AVENTIS-200612927EU

PATIENT
  Age: 78 Year
  Sex: Male

DRUGS (6)
  1. SEGURIL [Suspect]
     Indication: OEDEMA
     Route: 048
     Dates: start: 20051213, end: 20060314
  2. ALDACTONE [Suspect]
     Indication: OEDEMA
     Route: 048
     Dates: start: 20051213, end: 20060314
  3. ALDACTONE [Concomitant]
     Route: 048
     Dates: end: 20051213
  4. GABAPENTIN [Concomitant]
     Indication: NEUROPATHY
     Route: 048
     Dates: end: 20051213
  5. GABAPENTIN [Concomitant]
     Indication: NEUROTOXICITY
     Route: 048
     Dates: end: 20051213
  6. CELUPAN [Concomitant]
     Indication: ALCOHOLISM
     Route: 048

REACTIONS (1)
  - ENCEPHALOPATHY [None]
